FAERS Safety Report 5789979-3 (Version None)
Quarter: 2008Q2

REPORT INFORMATION
  Report Type: 
  Country: None (occurrence: None)
  Receive Date: 20080626
  Receipt Date: 20080215
  Transmission Date: 20081010
  Serious: No
  Sender: FDA-Public Use
  Company Number: A0709878A

PATIENT
  Age: 55 Year
  Sex: Male

DRUGS (4)
  1. ALLI [Suspect]
     Dates: start: 20080208
  2. DILTIAZEM [Concomitant]
  3. HYPOGLYCAEMIC MEDICATION [Concomitant]
  4. WATER PILL [Concomitant]
     Route: 048

REACTIONS (1)
  - POLLAKIURIA [None]
